FAERS Safety Report 13782556 (Version 1)
Quarter: 2017Q3

REPORT INFORMATION
  Report Type: Spontaneous
  Country: US (occurrence: US)
  Receive Date: 20170724
  Receipt Date: 20170724
  Transmission Date: 20171127
  Serious: Yes (Death)
  Sender: FDA-Public Use
  Company Number: US-LPDUSPRD-20171023

PATIENT
  Age: 55 Year
  Sex: Female

DRUGS (4)
  1. LEUCOVORIN CALCIUM INJECTION (0517-8605-25) [Suspect]
     Active Substance: LEUCOVORIN CALCIUM
     Dosage: UNKNOWN
     Route: 065
  2. EPIRUBICIN [Suspect]
     Active Substance: EPIRUBICIN
     Dosage: UNKNOWN
     Route: 065
  3. CISPLATIN. [Suspect]
     Active Substance: CISPLATIN
     Dosage: UNKNOWN
     Route: 065
  4. FLUOROURACIL. [Suspect]
     Active Substance: FLUOROURACIL
     Dosage: UNKNOWN
     Route: 065

REACTIONS (5)
  - Febrile neutropenia [Fatal]
  - Mucosal inflammation [Fatal]
  - Palmar-plantar erythrodysaesthesia syndrome [Fatal]
  - Neuropathy peripheral [Fatal]
  - Diarrhoea [Fatal]
